FAERS Safety Report 16811399 (Version 2)
Quarter: 2019Q4

REPORT INFORMATION
  Report Type: Report from Study
  Country: US (occurrence: US)
  Receive Date: 20190916
  Receipt Date: 20191119
  Transmission Date: 20200122
  Serious: Yes (Death, Hospitalization)
  Sender: FDA-Public Use
  Company Number: US-ACTELION-A-US2019-194419

PATIENT
  Sex: Male
  Weight: 79.82 kg

DRUGS (3)
  1. VENTAVIS [Suspect]
     Active Substance: ILOPROST
     Indication: PULMONARY ARTERIAL HYPERTENSION
     Dosage: 5.0 MCG INHALED 6 TO 9 TIMES PER DAY
     Route: 055
  2. SILDENAFIL CITRATE. [Concomitant]
     Active Substance: SILDENAFIL CITRATE
  3. WARFARIN [Concomitant]
     Active Substance: WARFARIN

REACTIONS (9)
  - Respiration abnormal [Recovering/Resolving]
  - Fatigue [Unknown]
  - Asthenia [Unknown]
  - Septic shock [Fatal]
  - Infection [Fatal]
  - Urinary tract infection [Unknown]
  - Oxygen saturation abnormal [Recovering/Resolving]
  - Haemoglobin decreased [Unknown]
  - Malaise [Recovering/Resolving]
